FAERS Safety Report 18961716 (Version 1)
Quarter: 2021Q1

REPORT INFORMATION
  Report Type: Spontaneous
  Country: US (occurrence: US)
  Receive Date: 20210303
  Receipt Date: 20210303
  Transmission Date: 20210420
  Serious: Yes (Life-Threatening, Hospitalization)
  Sender: FDA-Public Use
  Company Number: US-NOVOPROD-790937

PATIENT
  Age: 54 Year
  Sex: Female

DRUGS (1)
  1. LEVEMIR [Suspect]
     Active Substance: INSULIN DETEMIR
     Indication: PRODUCT USED FOR UNKNOWN INDICATION
     Dosage: 78 IU, QD (36 IN MORNING 42 IU NIGHT)
     Route: 058
     Dates: start: 2013

REACTIONS (5)
  - Sepsis [Unknown]
  - Lactic acidosis [Recovered/Resolved]
  - Infection [Unknown]
  - Neuropathy peripheral [Not Recovered/Not Resolved]
  - Impaired healing [Not Recovered/Not Resolved]

NARRATIVE: CASE EVENT DATE: 2014
